FAERS Safety Report 4600433-4 (Version None)
Quarter: 2005Q1

REPORT INFORMATION
  Report Type: 
  Country: None (occurrence: None)
  Receive Date: 20050127
  Receipt Date: 20041105
  Transmission Date: 20050727
  Serious: No
  Sender: FDA-Public Use
  Company Number: USA041183355

PATIENT
  Age: 31 Year
  Sex: Female

DRUGS (4)
  1. STRATTERA [Suspect]
     Indication: ATTENTION DEFICIT/HYPERACTIVITY DISORDER
     Dosage: 100 MG DAY
     Dates: start: 20030326
  2. AMOXICILLIN [Concomitant]
  3. WELLBUTRIN [Concomitant]
  4. ATENOLOL [Concomitant]

REACTIONS (1)
  - FEELING ABNORMAL [None]
